FAERS Safety Report 15781782 (Version 3)
Quarter: 2021Q3

REPORT INFORMATION
  Report Type: Report from Study
  Country: DK (occurrence: DK)
  Receive Date: 20190102
  Receipt Date: 20210812
  Transmission Date: 20211014
  Serious: Yes (Hospitalization, Other)
  Sender: FDA-Public Use
  Company Number: DK-BAYER-2018-184369

PATIENT
  Age: 52 Year
  Sex: Male
  Weight: 90.7 kg

DRUGS (13)
  1. LAROTRECTINIB [Suspect]
     Active Substance: LAROTRECTINIB
     Indication: NON-SMALL CELL LUNG CANCER
     Dosage: 100 MG AM, MISSED PM DOSE DUE TO AE FEVER
     Route: 048
     Dates: start: 20180717, end: 20180717
  2. LAROTRECTINIB [Suspect]
     Active Substance: LAROTRECTINIB
     Indication: NON-SMALL CELL LUNG CANCER
     Dosage: 100 MG, QD
     Route: 048
     Dates: start: 20180814, end: 20180910
  3. CENTRUM [MINERALS NOS;VITAMINS NOS] [Concomitant]
     Active Substance: MINERALS\VITAMINS
     Dosage: UNK
     Dates: start: 20180416
  4. LAROTRECTINIB [Suspect]
     Active Substance: LAROTRECTINIB
     Indication: NON-SMALL CELL LUNG CANCER
     Dosage: 100 MG, BID
     Route: 048
     Dates: start: 20181009, end: 20181204
  5. LAROTRECTINIB [Suspect]
     Active Substance: LAROTRECTINIB
     Indication: NON-SMALL CELL LUNG CANCER
     Dosage: 100 MG, BID
     Route: 048
  6. LAROTRECTINIB [Suspect]
     Active Substance: LAROTRECTINIB
     Indication: NON-SMALL CELL LUNG CANCER
     Dosage: 100 MG, BID
     Route: 048
     Dates: start: 20180719
  7. LAROTRECTINIB [Suspect]
     Active Substance: LAROTRECTINIB
     Indication: NON-SMALL CELL LUNG CANCER
     Dosage: 100 MG, BID
     Route: 048
     Dates: start: 20180911, end: 20181008
  8. LAROTRECTINIB [Suspect]
     Active Substance: LAROTRECTINIB
     Indication: NON-SMALL CELL LUNG CANCER
     Dosage: 100 MG AM DOSE, INTERRUPTED PM DOSE DUE TO AE FEVER
     Route: 048
     Dates: start: 20180718, end: 20180718
  9. MACROGOL;POTASSIUM CHLORIDE;SODIUM BICARBONATE;SODIUM CHLORIDE [Concomitant]
     Active Substance: POLYETHYLENE GLYCOL\POTASSIUM CHLORIDE\SODIUM BICARBONATE\SODIUM CHLORIDE
     Dosage: UNK
     Dates: start: 201805
  10. SOLU?MEDROL [Concomitant]
     Active Substance: METHYLPREDNISOLONE SODIUM SUCCINATE
     Indication: ALLERGY PROPHYLAXIS
     Dosage: 40 MG, PRN
     Route: 042
     Dates: start: 20180710
  11. PANTOPRAZOLE [Concomitant]
     Active Substance: PANTOPRAZOLE
     Dosage: UNK
     Dates: start: 201703
  12. CLEMASTINE [Concomitant]
     Active Substance: CLEMASTINE
     Indication: ALLERGY PROPHYLAXIS
     Dosage: 2 MG, PRN
     Route: 042
     Dates: start: 20180710
  13. ONDANSETRON [Concomitant]
     Active Substance: ONDANSETRON
     Indication: VOMITING
     Dosage: 4 MG, QD
     Route: 042
     Dates: start: 20180717, end: 20180717

REACTIONS (1)
  - Hypersensitivity [Recovered/Resolved]

NARRATIVE: CASE EVENT DATE: 20180717
